FAERS Safety Report 20636856 (Version 1)
Quarter: 2022Q1

REPORT INFORMATION
  Report Type: Spontaneous
  Country: US (occurrence: None)
  Receive Date: 20220325
  Receipt Date: 20220325
  Transmission Date: 20220423
  Serious: Yes (Disabling)
  Sender: FDA-Public Use
  Company Number: None

PATIENT
  Age: 56 Year
  Sex: Female
  Weight: 69.3 kg

DRUGS (7)
  1. CIPROFLOXACIN [Suspect]
     Active Substance: CIPROFLOXACIN
     Indication: Sinusitis
     Dosage: FREQUENCY : TWICE A DAY;?
     Route: 048
     Dates: start: 20170418, end: 20170420
  2. MEDROL [Suspect]
     Active Substance: METHYLPREDNISOLONE
     Indication: Sinusitis
     Route: 048
     Dates: start: 20170418, end: 20170427
  3. BIO IDENTICAL HORMONES MEDICATION [Concomitant]
  4. MITOCHONDRIAL [Concomitant]
  5. CNS [Concomitant]
  6. SKIN [Concomitant]
  7. UNSPECIFIED INGREDIENT [Concomitant]
     Active Substance: UNSPECIFIED INGREDIENT

REACTIONS (37)
  - Muscle spasms [None]
  - Gait inability [None]
  - Abdominal pain upper [None]
  - Headache [None]
  - Contusion [None]
  - Anorectal discomfort [None]
  - Sensitive skin [None]
  - Rash [None]
  - Fatigue [None]
  - Anxiety [None]
  - Depression [None]
  - Thinking abnormal [None]
  - Alopecia [None]
  - Weight increased [None]
  - Food intolerance [None]
  - Drug intolerance [None]
  - Collagen disorder [None]
  - Sjogren^s syndrome [None]
  - Systemic lupus erythematosus [None]
  - Fibromyalgia [None]
  - Scleroderma [None]
  - Nerve injury [None]
  - Olfactory nerve disorder [None]
  - Tendon disorder [None]
  - Tendonitis [None]
  - Skin atrophy [None]
  - Mast cell activation syndrome [None]
  - Histamine abnormal [None]
  - Nervous system disorder [None]
  - Trigeminal neuralgia [None]
  - Tooth disorder [None]
  - Visual impairment [None]
  - Connective tissue disorder [None]
  - Irritable bowel syndrome [None]
  - Palpitations [None]
  - Gastrointestinal wall abnormal [None]
  - Post-traumatic stress disorder [None]

NARRATIVE: CASE EVENT DATE: 20170421
